FAERS Safety Report 17055912 (Version 2)
Quarter: 2019Q4

REPORT INFORMATION
  Report Type: Spontaneous
  Country: US (occurrence: US)
  Receive Date: 20191120
  Receipt Date: 20191203
  Transmission Date: 20200122
  Serious: Yes (Hospitalization, Other)
  Sender: FDA-Public Use
  Company Number: US-AUROBINDO-AUR-APL-2019-073318

PATIENT
  Age: 67 Year
  Sex: Male

DRUGS (2)
  1. PROPOFOL. [Concomitant]
     Active Substance: PROPOFOL
     Indication: PRODUCT USED FOR UNKNOWN INDICATION
     Dosage: UNK
     Route: 065
  2. DEXMEDETOMIDINE. [Suspect]
     Active Substance: DEXMEDETOMIDINE
     Indication: ALCOHOL WITHDRAWAL SYNDROME
     Dosage: UNK
     Route: 065

REACTIONS (5)
  - Urine osmolarity increased [Recovered/Resolved]
  - Urine output increased [Recovered/Resolved]
  - Hypernatraemia [Recovered/Resolved]
  - Blood sodium increased [Recovered/Resolved]
  - Polyuria [Recovered/Resolved]
